FAERS Safety Report 10419464 (Version 1)
Quarter: 2014Q3

REPORT INFORMATION
  Report Type: Spontaneous
  Country: NL (occurrence: None)
  Receive Date: 20140827
  Receipt Date: 20140827
  Transmission Date: 20150326
  Serious: Yes (Hospitalization, Other)
  Sender: FDA-Public Use
  Company Number: 2014080045

PATIENT
  Age: 40 Year
  Sex: Male

DRUGS (1)
  1. OXYMETHOLONE (OXYMETHOLONE) [Suspect]
     Active Substance: OXYMETHOLONE
     Route: 048

REACTIONS (3)
  - Polycythaemia vera [None]
  - Back pain [None]
  - Renal infarct [None]
